FAERS Safety Report 23487157 (Version 3)
Quarter: 2024Q1

REPORT INFORMATION
  Report Type: Spontaneous
  Country: BE (occurrence: BE)
  Receive Date: 20240206
  Receipt Date: 20240304
  Transmission Date: 20240410
  Serious: Yes (Other)
  Sender: FDA-Public Use
  Company Number: BE-002147023-NVSC2024BE022221

PATIENT
  Age: 7 Month
  Sex: Male
  Weight: 3.61 kg

DRUGS (1)
  1. AIMOVIG [Suspect]
     Active Substance: ERENUMAB-AOOE
     Indication: Exposure during pregnancy
     Dosage: 1 DOSAGE FORM (EVERY 28DAYS)
     Route: 064
     Dates: start: 202107, end: 202211

REACTIONS (2)
  - Premature baby [Unknown]
  - Normal newborn [Unknown]
